FAERS Safety Report 11277871 (Version 2)
Quarter: 2015Q3

REPORT INFORMATION
  Report Type: Report from Study
  Country: US (occurrence: US)
  Receive Date: 20150716
  Receipt Date: 20150917
  Transmission Date: 20151125
  Serious: Yes (Disabling)
  Sender: FDA-Public Use
  Company Number: US-ALLERGAN-1513245US

PATIENT
  Age: 61 Year
  Sex: Male
  Weight: 82.54 kg

DRUGS (24)
  1. BOTULINUM TOXIN TYPE A - GENERAL (9060X) [Suspect]
     Active Substance: BOTULINUM TOXIN TYPE A
     Dosage: 15 UNITS, SINGLE
     Route: 030
     Dates: start: 20150410, end: 20150410
  2. BOTULINUM TOXIN TYPE A - GENERAL (9060X) [Suspect]
     Active Substance: BOTULINUM TOXIN TYPE A
     Dosage: 35 UNITS, SINGLE
     Route: 030
     Dates: start: 20150410, end: 20150410
  3. BOTULINUM TOXIN TYPE A - GENERAL (9060X) [Suspect]
     Active Substance: BOTULINUM TOXIN TYPE A
     Dosage: 15 UNITS SINGLE
     Route: 030
     Dates: start: 20150410, end: 20150410
  4. BOTULINUM TOXIN TYPE A - GENERAL (9060X) [Suspect]
     Active Substance: BOTULINUM TOXIN TYPE A
     Dosage: 25 UNITS, SINGLE
     Route: 030
     Dates: start: 20150410, end: 20150410
  5. BOTULINUM TOXIN TYPE A - GENERAL (9060X) [Suspect]
     Active Substance: BOTULINUM TOXIN TYPE A
     Dosage: 250 UNK, UNK
     Route: 030
     Dates: start: 20141010, end: 20141010
  6. CITALOPRAM [Concomitant]
     Active Substance: CITALOPRAM HYDROBROMIDE
  7. BOTULINUM TOXIN TYPE A - GENERAL (9060X) [Suspect]
     Active Substance: BOTULINUM TOXIN TYPE A
     Dosage: UNK UNK, SINGLE
     Route: 030
     Dates: start: 20150410, end: 20150410
  8. BOTULINUM TOXIN TYPE A - GENERAL (9060X) [Suspect]
     Active Substance: BOTULINUM TOXIN TYPE A
     Dosage: 15 UNITS, SINGLE
     Route: 030
     Dates: start: 20150410, end: 20150410
  9. BOTULINUM TOXIN TYPE A - GENERAL (9060X) [Suspect]
     Active Substance: BOTULINUM TOXIN TYPE A
     Dosage: 30 UNITS, SINGLE
     Route: 030
     Dates: start: 20150410, end: 20150410
  10. TRIMETHOPRIM SULFATE AND POLYMYXIN B SULFATE, 0.1% [Concomitant]
  11. ALLOPURINOL. [Concomitant]
     Active Substance: ALLOPURINOL
  12. FESOTERODINE [Concomitant]
     Active Substance: FESOTERODINE
  13. BOTULINUM TOXIN TYPE A - GENERAL (9060X) [Suspect]
     Active Substance: BOTULINUM TOXIN TYPE A
     Indication: MUSCLE SPASTICITY
     Dosage: UNK UNK, SINGLE
     Route: 030
     Dates: start: 20150410, end: 20150410
  14. BOTULINUM TOXIN TYPE A - GENERAL (9060X) [Suspect]
     Active Substance: BOTULINUM TOXIN TYPE A
     Dosage: 20 UNITS, SINGLE
     Route: 030
     Dates: start: 20150410, end: 20150410
  15. BOTULINUM TOXIN TYPE A - GENERAL (9060X) [Suspect]
     Active Substance: BOTULINUM TOXIN TYPE A
     Dosage: 35 UNITS, SINGLE
     Route: 030
     Dates: start: 20150410, end: 20150410
  16. FLUTICASONE [Concomitant]
     Active Substance: FLUTICASONE\FLUTICASONE PROPIONATE
  17. SULFAMETHAZINE [Concomitant]
     Active Substance: SULFAMETHAZINE
  18. TIZANIDINE. [Concomitant]
     Active Substance: TIZANIDINE
  19. PRAVASTATIN [Concomitant]
     Active Substance: PRAVASTATIN\PRAVASTATIN SODIUM
  20. BOTULINUM TOXIN TYPE A - GENERAL (9060X) [Suspect]
     Active Substance: BOTULINUM TOXIN TYPE A
     Dosage: 20 UNITS, SINGLE
     Route: 030
     Dates: start: 20150410, end: 20150410
  21. BOTULINUM TOXIN TYPE A - GENERAL (9060X) [Suspect]
     Active Substance: BOTULINUM TOXIN TYPE A
     Dosage: 15 UNITS, SINGLE
     Route: 030
     Dates: start: 20150410, end: 20150410
  22. BOTULINUM TOXIN TYPE A - GENERAL (9060X) [Suspect]
     Active Substance: BOTULINUM TOXIN TYPE A
     Dosage: 270 UNK, UNK
     Route: 030
     Dates: start: 20150109, end: 20150109
  23. FINASTERIDE. [Concomitant]
     Active Substance: FINASTERIDE
  24. LOSARTAN. [Concomitant]
     Active Substance: LOSARTAN

REACTIONS (2)
  - Speech disorder [Recovered/Resolved]
  - Musculoskeletal discomfort [Recovered/Resolved]

NARRATIVE: CASE EVENT DATE: 20150410
